FAERS Safety Report 4385725-9 (Version None)
Quarter: 2004Q2

REPORT INFORMATION
  Report Type: 
  Country: None (occurrence: None)
  Receive Date: 20040623
  Receipt Date: 20040608
  Transmission Date: 20050107
  Serious: Yes (Death)
  Sender: FDA-Public Use
  Company Number: A02200401848

PATIENT
  Age: 79 Year
  Sex: Male

DRUGS (5)
  1. PLAVIX [Suspect]
     Dosage: 75 MG OD,;TIME TO ONSET : 2 WEEKS 3 DAYS
     Route: 048
     Dates: start: 20040417, end: 20040515
  2. ASPEGIC 1000 [Suspect]
     Dosage: 1 UNIT OD; TIME TO ONSET : 2 WEEKS 0 DAYS
     Route: 048
     Dates: start: 20040420, end: 20040515
  3. ZOCOR [Suspect]
     Dosage: 40 MG OD; TIME TO ONSET :2 WEEKS 3 DAYS
     Route: 048
     Dates: start: 20040417, end: 20040505
  4. CARDENSIEL - (BISOPROLOL FUMARATE) - TABLET - 2.5 MG [Suspect]
     Dosage: 3.75 MG QD; TIME TO ONSET : 2 WEEKS 0 DAYS
     Route: 048
     Dates: start: 20040420, end: 20040516
  5. ATORVASTATIN CALCIUM [Concomitant]

REACTIONS (7)
  - CHOLELITHIASIS [None]
  - DYSPHAGIA [None]
  - HEPATIC ENCEPHALOPATHY [None]
  - HEPATIC FAILURE [None]
  - HEPATITIS FULMINANT [None]
  - PSYCHOMOTOR RETARDATION [None]
  - THROMBOCYTOPENIA [None]
